FAERS Safety Report 10058427 (Version 2)
Quarter: 2014Q2

REPORT INFORMATION
  Report Type: Spontaneous
  Country: JP (occurrence: JP)
  Receive Date: 20140404
  Receipt Date: 20140416
  Transmission Date: 20141212
  Serious: Yes (Other)
  Sender: FDA-Public Use
  Company Number: JP-SA-2014SA040507

PATIENT
  Age: 68 Year
  Sex: Male

DRUGS (1)
  1. DDAVP [Suspect]
     Indication: URINARY TRACT DISORDER
     Route: 065

REACTIONS (1)
  - Neutrophil count decreased [Unknown]
